FAERS Safety Report 9869370 (Version 2)
Quarter: 2014Q1

REPORT INFORMATION
  Report Type: Spontaneous
  Country: NL (occurrence: NL)
  Receive Date: 20140205
  Receipt Date: 20140207
  Transmission Date: 20141002
  Serious: No
  Sender: FDA-Public Use
  Company Number: NL-UCBSA-110894

PATIENT
  Age: 54 Year
  Sex: Female

DRUGS (2)
  1. CIMZIA [Suspect]
     Indication: RHEUMATOID ARTHRITIS
     Dosage: 8 DOSES RECEIVED
     Route: 058
     Dates: start: 20130919, end: 20131107
  2. ARAVA [Concomitant]
     Indication: RHEUMATOID ARTHRITIS
     Route: 048
     Dates: start: 20130820, end: 20131107

REACTIONS (1)
  - Psoriasis [Recovered/Resolved]
